FAERS Safety Report 5301485-9 (Version None)
Quarter: 2007Q2

REPORT INFORMATION
  Report Type: 
  Country: None (occurrence: None)
  Receive Date: 20070412
  Receipt Date: 20070329
  Transmission Date: 20071010
  Serious: Yes (Death)
  Sender: FDA-Public Use
  Company Number: T200700363

PATIENT

DRUGS (2)
  1. TECHNESCAN MAA [Suspect]
     Indication: VENTILATION/PERFUSION SCAN
     Dosage: SINGLE
     Dates: start: 20070303, end: 20070303
  2. ULTRA-TECHNEKOW [Suspect]
     Indication: RADIOISOTOPE SCAN
     Dosage: SINGLE
     Dates: start: 20070303, end: 20070303

REACTIONS (1)
  - DEATH [None]
